FAERS Safety Report 9174352 (Version 1)
Quarter: 2013Q1

REPORT INFORMATION
  Report Type: Spontaneous
  Country: US (occurrence: US)
  Receive Date: 20130320
  Receipt Date: 20130320
  Transmission Date: 20140127
  Serious: Yes (Other)
  Sender: FDA-Public Use
  Company Number: PHEH2013US006213

PATIENT
  Sex: Male

DRUGS (6)
  1. DIOVAN [Suspect]
     Indication: BLOOD PRESSURE ABNORMAL
     Dosage: 160 MG, UNK
  2. VICODIN [Concomitant]
     Indication: BACK PAIN
     Dosage: UNK UKN, UNK
  3. PRILOSEC [Concomitant]
     Dosage: UNK UKN, UNK
  4. CIMETIDINE [Concomitant]
     Dosage: UNK UKN, UNK
  5. CHLORTAB [Concomitant]
     Dosage: UNK UKN, UNK
  6. PSEUDOEPHEDRINE [Concomitant]
     Dosage: UNK UKN, UNK

REACTIONS (2)
  - Diabetes mellitus [Unknown]
  - Arthritis [Unknown]
